FAERS Safety Report 8553070-3 (Version None)
Quarter: 2012Q3

REPORT INFORMATION
  Report Type: 
  Country: None (occurrence: None)
  Receive Date: 20120731
  Receipt Date: 20120724
  Transmission Date: 20120928
  Serious: Yes (Hospitalization)
  Sender: FDA-Public Use
  Company Number: US-SANOFI-AVENTIS-2012SA048966

PATIENT
  Age: 32 Year
  Sex: Female
  Weight: 83.46 kg

DRUGS (11)
  1. LANTUS [Suspect]
     Dosage: DOSE:28 UNIT(S)
     Route: 058
  2. LANTUS [Suspect]
     Dosage: DOSE:28 UNIT(S)
     Route: 058
  3. HUMALOG [Concomitant]
     Dosage: DOSE:15 UNIT(S)
     Dates: start: 19990101
  4. EFFEXOR XR [Concomitant]
     Indication: DEPRESSION
     Dates: start: 20060101
  5. LANTUS [Suspect]
     Dosage: DOSE:28 UNIT(S)
     Route: 058
  6. CORTEF /CAN/ [Concomitant]
     Dates: start: 20120601
  7. TOPAMAX [Concomitant]
     Indication: MIGRAINE
     Dates: start: 20030101
  8. LANTUS [Suspect]
     Dosage: DOSE:28 UNIT(S)
     Route: 058
  9. LANTUS [Suspect]
     Dosage: DOSE:28 UNIT(S)
     Route: 058
  10. NEXIUM [Concomitant]
     Dates: start: 20010101
  11. LANTUS [Suspect]
     Dosage: DOSE:28 UNIT(S)
     Route: 058

REACTIONS (1)
  - ROAD TRAFFIC ACCIDENT [None]
